FAERS Safety Report 8611282 (Version 7)
Quarter: 2014Q3

REPORT INFORMATION
  Report Type: Report from Study
  Country: ES (occurrence: ES)
  Receive Date: 20120612
  Receipt Date: 20140826
  Transmission Date: 20150326
  Serious: Yes (Hospitalization)
  Sender: FDA-Public Use
  Company Number: ES-GILEAD-2012-0052796

PATIENT
  Age: 58 Year
  Sex: Female
  Weight: 51 kg

DRUGS (7)
  1. AMBRISENTAN [Suspect]
     Active Substance: AMBRISENTAN
     Indication: PULMONARY ARTERIAL HYPERTENSION
     Dosage: UNK UNK, QD
     Route: 048
     Dates: start: 20101224, end: 20120321
  2. AMBRISENTAN [Suspect]
     Active Substance: AMBRISENTAN
     Indication: CONNECTIVE TISSUE DISORDER
  3. TADALAFIL [Suspect]
     Active Substance: TADALAFIL
     Indication: SCLERODERMA
  4. AMBRISENTAN [Suspect]
     Active Substance: AMBRISENTAN
     Indication: SCLERODERMA
  5. TADALAFIL [Suspect]
     Active Substance: TADALAFIL
     Indication: PULMONARY ARTERIAL HYPERTENSION
     Dosage: UNK UNK, QD
     Route: 048
     Dates: start: 20101224, end: 20120321
  6. TADALAFIL [Suspect]
     Active Substance: TADALAFIL
     Indication: CONNECTIVE TISSUE DISORDER
  7. AMLODIPIN                          /00972401/ [Concomitant]
     Active Substance: AMLODIPINE BESYLATE
     Dosage: 10 MG, QD

REACTIONS (3)
  - Anaemia [Recovered/Resolved]
  - Fluid retention [Recovered/Resolved with Sequelae]
  - Transaminases increased [Recovered/Resolved]

NARRATIVE: CASE EVENT DATE: 20120320
